FAERS Safety Report 7002853-X (Version None)
Quarter: 2010Q3

REPORT INFORMATION
  Report Type: 
  Country: None (occurrence: None)
  Receive Date: 20100920
  Receipt Date: 20100218
  Transmission Date: 20110219
  Serious: No
  Sender: FDA-Public Use
  Company Number: US-ASTRAZENECA-2010SE07124

PATIENT
  Age: 24923 Day
  Sex: Female

DRUGS (11)
  1. SEROQUEL [Suspect]
     Indication: BIPOLAR DISORDER
     Route: 048
     Dates: start: 20090101, end: 20100118
  2. SEROQUEL [Suspect]
     Indication: INSOMNIA
     Route: 048
     Dates: start: 20090101, end: 20100118
  3. SEROQUEL [Suspect]
     Route: 048
     Dates: start: 20090101, end: 20100118
  4. SEROQUEL [Suspect]
     Route: 048
     Dates: start: 20090101, end: 20100118
  5. SEROQUEL [Suspect]
     Route: 048
     Dates: start: 20100118
  6. SEROQUEL [Suspect]
     Route: 048
     Dates: start: 20100118
  7. KLONOPIN [Concomitant]
  8. LEXAPRO [Concomitant]
  9. LORTAB [Concomitant]
  10. TRAMADOL [Concomitant]
  11. MELATONIN [Concomitant]

REACTIONS (2)
  - DRUG TOLERANCE [None]
  - INTENTIONAL DRUG MISUSE [None]
